FAERS Safety Report 11278260 (Version 1)
Quarter: 2015Q3

REPORT INFORMATION
  Report Type: Report from Study
  Country: NL (occurrence: NL)
  Receive Date: 20150717
  Receipt Date: 20150717
  Transmission Date: 20151125
  Serious: Yes (Hospitalization)
  Sender: FDA-Public Use
  Company Number: NL-AMGEN-NLDSL2015070756

PATIENT
  Age: 96 Year
  Sex: Male

DRUGS (1)
  1. ARANESP [Suspect]
     Active Substance: DARBEPOETIN ALFA
     Indication: PRODUCT USED FOR UNKNOWN INDICATION
     Dosage: 0.1 ML (500MCG/ML), Q4WK
     Route: 058

REACTIONS (1)
  - Haematocrit [Recovered/Resolved]

NARRATIVE: CASE EVENT DATE: 20150710
